FAERS Safety Report 7157099-1 (Version None)
Quarter: 2010Q4

REPORT INFORMATION
  Report Type: 
  Country: None (occurrence: None)
  Receive Date: 20101214
  Receipt Date: 20100111
  Transmission Date: 20110411
  Serious: No
  Sender: FDA-Public Use
  Company Number: US-ASTRAZENECA-2010SE01164

PATIENT
  Sex: Female
  Weight: 152 kg

DRUGS (8)
  1. CRESTOR [Suspect]
     Dosage: 10 MG
     Route: 048
     Dates: start: 20091101
  2. LEVOXYL [Concomitant]
  3. METFORMIN [Concomitant]
  4. HYDROCODONE [Concomitant]
  5. VOLTARIN 10% GEL [Concomitant]
  6. LEVAQUIN [Concomitant]
  7. DIOVAN [Concomitant]
  8. NORVASC [Concomitant]

REACTIONS (1)
  - ARTHRITIS [None]
